FAERS Safety Report 7842238-7 (Version None)
Quarter: 2011Q4

REPORT INFORMATION
  Report Type: 
  Country: None (occurrence: None)
  Receive Date: 20111025
  Receipt Date: 20111012
  Transmission Date: 20120403
  Serious: Yes (Other)
  Sender: FDA-Public Use
  Company Number: US-JNJFOC-20111006558

PATIENT
  Age: 48 Year
  Sex: Female
  Weight: 45.36 kg

DRUGS (14)
  1. HALDOL [Suspect]
     Indication: SCHIZOAFFECTIVE DISORDER
     Route: 048
     Dates: start: 20110501, end: 20110101
  2. ALL OTHER THERAPEUTIC PRODUCTS [Concomitant]
     Indication: MANIA
     Route: 065
  3. DEPAKOTE [Suspect]
     Dosage: 500MG, 1 IN 12 HR
     Route: 048
     Dates: start: 20110501, end: 20110701
  4. ABILIFY [Suspect]
     Indication: SCHIZOAFFECTIVE DISORDER
     Route: 048
  5. ALL OTHER THERAPEUTIC PRODUCTS [Concomitant]
     Indication: BIPOLAR DISORDER
     Route: 065
  6. ALL OTHER THERAPEUTIC PRODUCTS [Concomitant]
     Indication: SCHIZOAFFECTIVE DISORDER
     Route: 065
  7. HALDOL [Suspect]
     Indication: MANIA
     Route: 048
     Dates: start: 20110501, end: 20110101
  8. HALDOL [Suspect]
     Indication: BIPOLAR DISORDER
     Route: 048
     Dates: start: 20110501, end: 20110101
  9. HALDOL [Suspect]
     Dosage: TAKEN OFF COLD TURKEY
     Route: 048
     Dates: start: 20110101, end: 20110101
  10. DEPAKOTE [Suspect]
     Indication: MANIA
     Dosage: 500MG AND 1000MG IN 12 HR APART
     Route: 048
     Dates: start: 20110701
  11. ABILIFY [Suspect]
     Indication: BIPOLAR DISORDER
     Route: 048
  12. HALDOL [Suspect]
     Dosage: TAKEN OFF COLD TURKEY
     Route: 048
     Dates: start: 20110101, end: 20110101
  13. HALDOL [Suspect]
     Dosage: TAKEN OFF COLD TURKEY
     Route: 048
     Dates: start: 20110101, end: 20110101
  14. ABILIFY [Suspect]
     Indication: MANIA
     Route: 048

REACTIONS (16)
  - MUSCLE TWITCHING [None]
  - DECREASED APPETITE [None]
  - FATIGUE [None]
  - MUTISM [None]
  - DYSKINESIA [None]
  - POLYDIPSIA [None]
  - RETCHING [None]
  - SOCIAL AVOIDANT BEHAVIOUR [None]
  - INCORRECT ROUTE OF DRUG ADMINISTRATION [None]
  - SOMNOLENCE [None]
  - ABNORMAL BEHAVIOUR [None]
  - EYE MOVEMENT DISORDER [None]
  - MUSCLE CONTRACTURE [None]
  - TOBACCO USER [None]
  - BRUXISM [None]
  - GRUNTING [None]
